FAERS Safety Report 19974214 (Version 1)
Quarter: 2021Q4

REPORT INFORMATION
  Report Type: Spontaneous
  Country: CA (occurrence: CA)
  Receive Date: 20211020
  Receipt Date: 20211020
  Transmission Date: 20220303
  Serious: Yes (Other)
  Sender: FDA-Public Use
  Company Number: CA-TEVA-2021-CA-1966013

PATIENT
  Age: 68 Year
  Sex: Male

DRUGS (5)
  1. METHOTREXATE [Suspect]
     Active Substance: METHOTREXATE
     Indication: Product used for unknown indication
     Route: 065
  2. ASPIRIN [Suspect]
     Active Substance: ASPIRIN
     Route: 065
  3. DESOXIMETASONE [Suspect]
     Active Substance: DESOXIMETASONE
     Indication: Product used for unknown indication
     Route: 065
  4. HUMIRA [Suspect]
     Active Substance: ADALIMUMAB
     Indication: Rheumatoid arthritis
     Route: 058
  5. HYDROXYCHLOROQUINE SULFATE [Suspect]
     Active Substance: HYDROXYCHLOROQUINE SULFATE
     Route: 065

REACTIONS (13)
  - Arthralgia [Not Recovered/Not Resolved]
  - Fatigue [Not Recovered/Not Resolved]
  - Feeling abnormal [Not Recovered/Not Resolved]
  - Immunodeficiency [Not Recovered/Not Resolved]
  - Impaired quality of life [Not Recovered/Not Resolved]
  - Joint swelling [Not Recovered/Not Resolved]
  - Nausea [Not Recovered/Not Resolved]
  - Paralysis [Not Recovered/Not Resolved]
  - Polymyalgia rheumatica [Not Recovered/Not Resolved]
  - Somnolence [Not Recovered/Not Resolved]
  - Synovitis [Not Recovered/Not Resolved]
  - Wrist surgery [Not Recovered/Not Resolved]
  - Drug ineffective [Not Recovered/Not Resolved]
